FAERS Safety Report 4305370-0 (Version None)
Quarter: 2004Q1

REPORT INFORMATION
  Report Type: 
  Country: None (occurrence: None)
  Receive Date: 20040226
  Receipt Date: 20030827
  Transmission Date: 20041129
  Serious: No
  Sender: FDA-Public Use
  Company Number: US-BRISTOL-MYERS SQUIBB COMPANY-12366639

PATIENT
  Age: 39 Year
  Sex: Female

DRUGS (9)
  1. TAXOL [Suspect]
     Indication: CARCINOMA
     Dosage: ADMINISTERED IN 500 CC DEXTROSE (5%) IN WATER VIA VASCULAR ACCESS DEVICE
     Route: 042
     Dates: start: 20030814, end: 20030814
  2. PAXIL [Concomitant]
     Route: 048
  3. KLONOPIN [Concomitant]
     Route: 048
  4. ACIPHEX [Concomitant]
     Route: 048
  5. ZOFRAN [Concomitant]
     Route: 042
  6. DECADRON [Concomitant]
     Route: 042
  7. CIMETIDINE HCL [Concomitant]
  8. CLARITIN [Concomitant]
     Route: 048
  9. PERCOCET TABS 5 MG/325 MG [Concomitant]

REACTIONS (1)
  - EXTRAVASATION [None]
